FAERS Safety Report 6497215-8 (Version None)
Quarter: 2009Q4

REPORT INFORMATION
  Report Type: 
  Country: None (occurrence: None)
  Receive Date: 20091215
  Receipt Date: 20090622
  Transmission Date: 20100525
  Serious: Yes (Hospitalization)
  Sender: FDA-Public Use
  Company Number: A0793104A

PATIENT
  Age: 81 Year
  Sex: Male

DRUGS (11)
  1. AVODART [Suspect]
     Indication: BENIGN PROSTATIC HYPERPLASIA
     Dosage: .5MGK PER DAY
     Route: 048
     Dates: start: 20090301
  2. ZETIA [Concomitant]
  3. LIPITOR [Concomitant]
  4. NORVASC [Concomitant]
  5. ATENOLOL [Concomitant]
  6. HYDROCHLOROTHIAZIDE [Concomitant]
  7. PLAVIX [Concomitant]
  8. ISOSORBIDE [Concomitant]
  9. XALATAN [Concomitant]
  10. BETAGAN [Concomitant]
  11. ASPIRIN [Concomitant]

REACTIONS (1)
  - URTICARIA [None]
